FAERS Safety Report 10617361 (Version 1)
Quarter: 2014Q4

REPORT INFORMATION
  Report Type: Spontaneous
  Country: US (occurrence: US)
  Receive Date: 20141201
  Receipt Date: 20141201
  Transmission Date: 20150529
  Serious: Yes (Other)
  Sender: FDA-Public Use
  Company Number: US-GLAXOSMITHKLINE-US2014GSK027298

PATIENT
  Sex: Female

DRUGS (3)
  1. ADVAIR HFA [Suspect]
     Active Substance: FLUTICASONE PROPIONATE\SALMETEROL XINAFOATE
     Indication: PRODUCT USED FOR UNKNOWN INDICATION
     Dosage: UNK, PRN
     Route: 055
  2. ALBUTEROL. [Concomitant]
     Active Substance: ALBUTEROL
  3. KEPPRA [Concomitant]
     Active Substance: LEVETIRACETAM

REACTIONS (3)
  - Drug administration error [Unknown]
  - Pneumothorax [Unknown]
  - Nausea [Unknown]

NARRATIVE: CASE EVENT DATE: 20140611
